FAERS Safety Report 24096811 (Version 1)
Quarter: 2024Q3

REPORT INFORMATION
  Report Type: Spontaneous
  Country: US (occurrence: US)
  Receive Date: 20240716
  Receipt Date: 20240716
  Transmission Date: 20241017
  Serious: Yes (Other)
  Sender: PFIZER
  Company Number: US-PFIZER INC-202400213854

PATIENT
  Age: 29 Year
  Sex: Female
  Weight: 58.97 kg

DRUGS (1)
  1. NURTEC ODT [Suspect]
     Active Substance: RIMEGEPANT SULFATE
     Indication: Migraine
     Dosage: 75MG TAKING IT EVERY 2-3 WEEKS AS NEEDED
     Dates: start: 2024, end: 20240708

REACTIONS (11)
  - Myocardial infarction [Unknown]
  - Monoplegia [Recovered/Resolved]
  - Panic attack [Recovering/Resolving]
  - Pruritus [Recovering/Resolving]
  - Pharyngeal swelling [Recovering/Resolving]
  - Paraesthesia [Not Recovered/Not Resolved]
  - Hypersensitivity [Unknown]
  - Anxiety [Unknown]
  - Chest discomfort [Unknown]
  - Blood magnesium decreased [Unknown]
  - Blood phosphorus decreased [Unknown]

NARRATIVE: CASE EVENT DATE: 20240101
